FAERS Safety Report 20920565 (Version 1)
Quarter: 2022Q2

REPORT INFORMATION
  Report Type: Spontaneous
  Country: US (occurrence: US)
  Receive Date: 20220606
  Receipt Date: 20220606
  Transmission Date: 20220720
  Serious: No
  Sender: FDA-Public Use
  Company Number: US-BRISTOL-MYERS SQUIBB COMPANY-2022-038580

PATIENT
  Age: 78 Year
  Sex: Male

DRUGS (1)
  1. REVLIMID [Suspect]
     Active Substance: LENALIDOMIDE
     Indication: Plasma cell myeloma
     Dosage: FREQ- TAKE 1 CAPSULE4 (25MG TOTAL) BY MOUTH EVERY DAY FOR 21 DAYS.TAKE WHOLE WITH WATER.DO NOT BREAK
     Dates: start: 20220418

REACTIONS (1)
  - Product dose omission issue [Unknown]
